FAERS Safety Report 11784776 (Version 1)
Quarter: 2015Q4

REPORT INFORMATION
  Report Type: Spontaneous
  Country: RS (occurrence: RS)
  Receive Date: 20151130
  Receipt Date: 20151130
  Transmission Date: 20160305
  Serious: Yes (Other)
  Sender: FDA-Public Use
  Company Number: RS-CIPLA LTD.-2015RS08922

PATIENT

DRUGS (2)
  1. GEMCITABINE [Suspect]
     Active Substance: GEMCITABINE\GEMCITABINE HYDROCHLORIDE
     Indication: SPINDLE CELL SARCOMA
     Dosage: 3 CYCLES
     Route: 065
  2. CISPLATIN. [Suspect]
     Active Substance: CISPLATIN
     Indication: SPINDLE CELL SARCOMA
     Dosage: 3 CYCLES
     Route: 065

REACTIONS (2)
  - Disease recurrence [Unknown]
  - Metastasis [Unknown]
